FAERS Safety Report 8175722-X (Version None)
Quarter: 2012Q1

REPORT INFORMATION
  Report Type: 
  Country: None (occurrence: None)
  Receive Date: 20120301
  Receipt Date: 20120227
  Transmission Date: 20120608
  Serious: Yes (Death, Hospitalization)
  Sender: FDA-Public Use
  Company Number: IE-AMGEN-IRLSP2011067362

PATIENT
  Age: 79 Year
  Sex: Female

DRUGS (6)
  1. CALCIUM CARBONATE [Concomitant]
  2. LIPITOR [Concomitant]
  3. TOLTERODINE TARTRATE [Concomitant]
  4. FUROSEMIDE [Concomitant]
  5. WARFARIN SODIUM [Concomitant]
     Indication: ATRIAL FIBRILLATION
     Dosage: UNK
  6. ARANESP [Suspect]
     Indication: RENAL FAILURE CHRONIC
     Dosage: 40 MUG, QMO
     Route: 058
     Dates: start: 20100310, end: 20111121

REACTIONS (6)
  - DELIRIUM [None]
  - DEATH [None]
  - INTERNATIONAL NORMALISED RATIO INCREASED [None]
  - CARDIAC FAILURE CONGESTIVE [None]
  - BRONCHOPNEUMONIA [None]
  - HAEMORRHAGE INTRACRANIAL [None]
